FAERS Safety Report 15628872 (Version 1)
Quarter: 2018Q4

REPORT INFORMATION
  Report Type: Spontaneous
  Country: RO (occurrence: RO)
  Receive Date: 20181116
  Receipt Date: 20181116
  Transmission Date: 20190205
  Serious: Yes (Other)
  Sender: FDA-Public Use
  Company Number: RO-PFIZER INC-2018467001

PATIENT
  Age: 70 Year
  Sex: Male
  Weight: 90 kg

DRUGS (8)
  1. TRAMADOL. [Concomitant]
     Active Substance: TRAMADOL
     Dosage: UNK UNK, 2X/DAY (MORNING AND EVENING)
  2. TEZEO [Concomitant]
     Active Substance: TELMISARTAN
     Dosage: UNK UNK, 1X/DAY (MORNING)
  3. TEOTARD [Concomitant]
     Active Substance: THEOPHYLLINE ANHYDROUS
     Dosage: UNK UNK, 2X/DAY (MORNING AND EVENING)
  4. CORYOL [CARVEDILOL] [Concomitant]
     Dosage: UNK UNK, 1X/DAY (MORNING)
  5. AXITINIB [Suspect]
     Active Substance: AXITINIB
     Indication: RENAL CANCER METASTATIC
     Dosage: 10 MG, DAILY
     Dates: start: 20181017, end: 20181022
  6. DHC [Concomitant]
     Active Substance: DIHYDROCODEINE BITARTRATE
     Dosage: UNK UNK, 2X/DAY, (MORNING AND EVENING)
  7. CARNIL [Concomitant]
     Dosage: UNK UNK, 1X/DAY (NOON)
  8. ANXIAR [Concomitant]
     Active Substance: LORAZEPAM
     Dosage: UNK UNK, 1X/DAY (EVENING)

REACTIONS (3)
  - Pleurisy [Unknown]
  - Hypertension [Unknown]
  - Haemoptysis [Unknown]

NARRATIVE: CASE EVENT DATE: 20181022
